FAERS Safety Report 19755756 (Version 18)
Quarter: 2023Q4

REPORT INFORMATION
  Report Type: Report from Study
  Country: ES (occurrence: ES)
  Receive Date: 20210827
  Receipt Date: 20231023
  Transmission Date: 20240109
  Serious: Yes (Hospitalization, Other)
  Sender: FDA-Public Use
  Company Number: ES-AKCEA THERAPEUTICS, INC.-2021IS001477

PATIENT

DRUGS (11)
  1. TEGSEDI [Suspect]
     Active Substance: INOTERSEN SODIUM
     Indication: Amyloidosis
     Dosage: 284 MG, QW
     Route: 058
     Dates: start: 20230213
  2. TEGSEDI [Suspect]
     Active Substance: INOTERSEN SODIUM
     Dosage: 284 MG, QW
     Route: 058
     Dates: start: 20200414
  3. TEGSEDI [Suspect]
     Active Substance: INOTERSEN SODIUM
     Dosage: 284 MG, QW
     Route: 058
     Dates: start: 20200417
  4. TEGSEDI [Suspect]
     Active Substance: INOTERSEN SODIUM
     Dosage: 284 MG, QW
     Route: 058
     Dates: start: 20210611
  5. TEGSEDI [Suspect]
     Active Substance: INOTERSEN SODIUM
     Dosage: 284 MG, QW
     Route: 058
     Dates: start: 20220127, end: 20230128
  6. FOSTER                             /00500401/ [Concomitant]
     Indication: Asthma
     Dosage: 2 INHALATIONS DAILY
  7. LEVOTHYROXINE SODIUM [Concomitant]
     Active Substance: LEVOTHYROXINE SODIUM
     Indication: Hypothyroidism
     Dosage: 45 MG, QD
     Route: 048
  8. OMEPRAZOL                          /00661201/ [Concomitant]
     Indication: Prophylaxis
     Dosage: 20 MG, QD
     Route: 048
  9. OLMESARTAN MEDOXOMIL [Concomitant]
     Active Substance: OLMESARTAN MEDOXOMIL
     Indication: Hypertension
     Dosage: 10 MG, BID
     Route: 048
  10. ALPRAZOLAM [Concomitant]
     Active Substance: ALPRAZOLAM
     Indication: Product used for unknown indication
     Dosage: UNK
     Route: 065
     Dates: start: 20220820
  11. SERTRALINE HYDROCHLORIDE [Concomitant]
     Active Substance: SERTRALINE HYDROCHLORIDE
     Indication: Product used for unknown indication
     Route: 065

REACTIONS (74)
  - Pain in extremity [Recovered/Resolved]
  - Depressed mood [Recovered/Resolved]
  - Cataract [Recovered/Resolved]
  - Eye inflammation [Recovered/Resolved]
  - Pneumonia pneumococcal [Recovered/Resolved]
  - Cough [Recovered/Resolved]
  - Secretion discharge [Recovered/Resolved]
  - Aphonia [Recovered/Resolved]
  - Malaise [Recovered/Resolved]
  - Nasopharyngitis [Recovered/Resolved]
  - Blood lactate dehydrogenase increased [Recovered/Resolved]
  - pH urine increased [Recovered/Resolved]
  - Blood urea increased [Recovered/Resolved]
  - Fatigue [Recovered/Resolved]
  - Feeling cold [Recovered/Resolved]
  - Chills [Recovered/Resolved]
  - Influenza [Recovered/Resolved]
  - Body temperature increased [Recovered/Resolved]
  - Blood potassium increased [Not Recovered/Not Resolved]
  - Mean cell haemoglobin concentration decreased [Recovered/Resolved]
  - Urine albumin/creatinine ratio increased [Not Recovered/Not Resolved]
  - Blood creatinine increased [Recovered/Resolved]
  - Renal function test abnormal [Not Recovered/Not Resolved]
  - Creatinine urine increased [Recovered/Resolved]
  - Microalbuminuria [Not Recovered/Not Resolved]
  - Mean cell volume increased [Recovered/Resolved]
  - Haemoglobin decreased [Recovered/Resolved]
  - Haematocrit decreased [Recovered/Resolved]
  - Red blood cell count decreased [Recovered/Resolved]
  - Blood creatine phosphokinase increased [Recovered/Resolved]
  - Urine protein/creatinine ratio increased [Recovered/Resolved]
  - Protein urine present [Recovered/Resolved]
  - Blood bilirubin decreased [Recovered/Resolved]
  - Abdominal pain upper [Recovered/Resolved]
  - Pollakiuria [Recovered/Resolved]
  - Feeling abnormal [Recovered/Resolved]
  - Headache [Recovered/Resolved]
  - Nasopharyngitis [Recovered/Resolved]
  - Blood cholesterol increased [Recovered/Resolved]
  - Blood glucose increased [Recovered/Resolved]
  - Low density lipoprotein increased [Recovered/Resolved]
  - Flushing [Recovered/Resolved]
  - Nervousness [Recovered/Resolved]
  - Eye disorder [Recovered/Resolved]
  - Hypotension [Recovered/Resolved]
  - COVID-19 [Recovered/Resolved]
  - Anxiety [Recovered/Resolved]
  - Weight decreased [Recovered/Resolved]
  - Irritability [Recovered/Resolved]
  - Blood triglycerides increased [Recovered/Resolved]
  - Total cholesterol/HDL ratio increased [Recovered/Resolved]
  - Prealbumin decreased [Not Recovered/Not Resolved]
  - Albumin urine present [Not Recovered/Not Resolved]
  - Chest pain [Recovered/Resolved]
  - Depression [Recovered/Resolved]
  - Diarrhoea [Recovered/Resolved]
  - Decreased appetite [Recovered/Resolved]
  - Mental status changes [Recovered/Resolved]
  - Serum ferritin increased [Recovered/Resolved]
  - White blood cells urine positive [Recovered/Resolved]
  - Diabetic nephropathy [Recovering/Resolving]
  - Nasopharyngitis [Recovered/Resolved]
  - Discomfort [Recovered/Resolved]
  - Apathy [Recovered/Resolved]
  - Full blood count decreased [Recovered/Resolved]
  - Abscess [Recovered/Resolved]
  - Monocyte count increased [Not Recovered/Not Resolved]
  - Neutrophil count decreased [Recovered/Resolved]
  - Aspartate aminotransferase increased [Recovered/Resolved]
  - Specific gravity urine decreased [Recovered/Resolved]
  - Fall [Recovered/Resolved]
  - Ligament sprain [Recovered/Resolved]
  - Walking aid user [Recovered/Resolved]
  - Complex regional pain syndrome [Unknown]

NARRATIVE: CASE EVENT DATE: 20210501
